FAERS Safety Report 7290227-6 (Version None)
Quarter: 2011Q1

REPORT INFORMATION
  Report Type: 
  Country: None (occurrence: None)
  Receive Date: 20110214
  Receipt Date: 20110204
  Transmission Date: 20110831
  Serious: Yes (Other)
  Sender: FDA-Public Use
  Company Number: ES-JNJFOC-20090404563

PATIENT
  Sex: Female

DRUGS (6)
  1. ADIRO [Concomitant]
  2. COROPRES [Concomitant]
     Indication: HYPERTENSION
     Route: 048
  3. SINTROM [Concomitant]
     Indication: ILL-DEFINED DISORDER
     Route: 048
  4. CARDYL [Concomitant]
     Indication: HYPERCHOLESTEROLAEMIA
     Route: 048
  5. COAPROVEL [Concomitant]
     Indication: HYPERTENSION
     Route: 048
  6. RISPERDAL [Suspect]
     Indication: ILL-DEFINED DISORDER
     Route: 048

REACTIONS (3)
  - HALLUCINATION [None]
  - GAIT DISTURBANCE [None]
  - DEMENTIA [None]
